FAERS Safety Report 15017734 (Version 1)
Quarter: 2018Q2

REPORT INFORMATION
  Report Type: Spontaneous
  Country: NO (occurrence: NO)
  Receive Date: 20180615
  Receipt Date: 20180615
  Transmission Date: 20180711
  Serious: Yes (Hospitalization, Other)
  Sender: FDA-Public Use
  Company Number: NO-PFIZER INC-2018240423

PATIENT
  Age: 7 Decade
  Sex: Male

DRUGS (3)
  1. CERITINIB [Suspect]
     Active Substance: CERITINIB
     Dosage: UNK
     Dates: start: 201803
  2. CERITINIB [Suspect]
     Active Substance: CERITINIB
     Indication: ADENOCARCINOMA
     Dosage: FOR ONE MONTH
     Dates: start: 201801, end: 201802
  3. XALKORI [Suspect]
     Active Substance: CRIZOTINIB
     Indication: ADENOCARCINOMA
     Dosage: UNK
     Dates: start: 201802, end: 201803

REACTIONS (6)
  - Hepatic enzyme increased [Unknown]
  - Infection [Unknown]
  - Subileus [Unknown]
  - Weight decreased [Unknown]
  - Pneumonia [Unknown]
  - Abdominal pain [Unknown]

NARRATIVE: CASE EVENT DATE: 201802
